FAERS Safety Report 5396887-9 (Version None)
Quarter: 2007Q3

REPORT INFORMATION
  Report Type: 
  Country: None (occurrence: None)
  Receive Date: 20070725
  Receipt Date: 20070716
  Transmission Date: 20080115
  Serious: Yes (Hospitalization, Other)
  Sender: FDA-Public Use
  Company Number: US-ELI_LILLY_AND_COMPANY-US200707003927

PATIENT
  Sex: Female
  Weight: 62.585 kg

DRUGS (2)
  1. FORTEO [Suspect]
     Indication: OSTEOPOROSIS
     Dosage: 20 UG, EACH EVENING
     Dates: start: 20070510, end: 20070707
  2. FORTEO [Suspect]
     Dosage: 20 UG, EACH MORNING
     Dates: start: 20070708, end: 20070710

REACTIONS (6)
  - ASTHENIA [None]
  - CARDIAC FAILURE [None]
  - CAROTID ARTERY THROMBOSIS [None]
  - DYSPNOEA [None]
  - MYOCARDIAL INFARCTION [None]
  - WEIGHT DECREASED [None]
